FAERS Safety Report 21123121 (Version 1)
Quarter: 2022Q3

REPORT INFORMATION
  Report Type: Spontaneous
  Country: US (occurrence: US)
  Receive Date: 20220724
  Receipt Date: 20220724
  Transmission Date: 20221026
  Serious: Yes (Other)
  Sender: FDA-Public Use
  Company Number: US-STRIDES ARCOLAB LIMITED-2021SP025566

PATIENT
  Sex: Female

DRUGS (6)
  1. MYCOPHENOLATE MOFETIL [Suspect]
     Active Substance: MYCOPHENOLATE MOFETIL
     Indication: End stage renal disease
     Dosage: UNK
     Route: 065
  2. MYCOPHENOLATE MOFETIL [Suspect]
     Active Substance: MYCOPHENOLATE MOFETIL
     Indication: Anti-glomerular basement membrane disease
  3. PREDNISOLONE [Suspect]
     Active Substance: PREDNISOLONE
     Indication: End stage renal disease
     Dosage: UNK
     Route: 065
  4. PREDNISOLONE [Suspect]
     Active Substance: PREDNISOLONE
     Indication: Anti-glomerular basement membrane disease
  5. CYCLOSPORINE [Suspect]
     Active Substance: CYCLOSPORINE
     Indication: End stage renal disease
     Dosage: UNK
     Route: 065
  6. CYCLOSPORINE [Suspect]
     Active Substance: CYCLOSPORINE
     Indication: Anti-glomerular basement membrane disease

REACTIONS (3)
  - Squamous cell carcinoma [Unknown]
  - Hepatocellular carcinoma [Unknown]
  - Off label use [Unknown]
